FAERS Safety Report 9856605 (Version 1)
Quarter: 2014Q1

REPORT INFORMATION
  Report Type: Spontaneous
  Country: GB (occurrence: GB)
  Receive Date: 20140130
  Receipt Date: 20140130
  Transmission Date: 20141002
  Serious: Yes (Hospitalization)
  Sender: FDA-Public Use
  Company Number: GB-SA-2014SA010215

PATIENT
  Age: 41 Year
  Sex: Female

DRUGS (3)
  1. RIFATER [Suspect]
     Indication: UVEITIS
     Route: 065
  2. MOXIFLOXACIN [Concomitant]
  3. PYRIDOXINE [Concomitant]

REACTIONS (2)
  - Haemolysis [Recovered/Resolved]
  - Acute hepatic failure [Recovered/Resolved]
